FAERS Safety Report 21001201 (Version 1)
Quarter: 2022Q2

REPORT INFORMATION
  Report Type: Spontaneous
  Country: US (occurrence: US)
  Receive Date: 20220624
  Receipt Date: 20220624
  Transmission Date: 20220721
  Serious: No
  Sender: FDA-Public Use
  Company Number: US-BioHaven Pharmaceuticals-2022BHV000829

PATIENT
  Age: 82 Year
  Sex: Female

DRUGS (5)
  1. NURTEC ODT [Suspect]
     Active Substance: RIMEGEPANT SULFATE
     Indication: Product used for unknown indication
     Route: 065
  2. UBRELVY [Concomitant]
     Active Substance: UBROGEPANT
     Indication: Product used for unknown indication
     Route: 065
  3. UBRELVY [Concomitant]
     Active Substance: UBROGEPANT
     Route: 065
  4. FIRIONAL [Concomitant]
     Indication: Product used for unknown indication
     Dosage: A MED THAT THEY WERE WORKING TO WEAN OFF
     Route: 065
  5. FIRIONAL [Concomitant]
     Route: 065

REACTIONS (1)
  - Diarrhoea [Recovered/Resolved]
